FAERS Safety Report 6192898-4 (Version None)
Quarter: 2009Q2

REPORT INFORMATION
  Report Type: 
  Country: None (occurrence: None)
  Receive Date: 20090518
  Receipt Date: 20090512
  Transmission Date: 20091009
  Serious: Yes (Hospitalization, Other)
  Sender: FDA-Public Use
  Company Number: HU-BAYER-200920106GPV

PATIENT
  Age: 34 Year
  Sex: Female
  Weight: 65 kg

DRUGS (1)
  1. MIRENA [Suspect]
     Indication: CONTRACEPTION
     Route: 015
     Dates: start: 20081120, end: 20090331

REACTIONS (4)
  - CERVICAL DYSPLASIA [None]
  - CERVICAL LEUKOPLAKIA [None]
  - MENSTRUATION IRREGULAR [None]
  - PELVIC PAIN [None]
